FAERS Safety Report 21558768 (Version 2)
Quarter: 2022Q4

REPORT INFORMATION
  Report Type: Spontaneous
  Country: US (occurrence: US)
  Receive Date: 20221107
  Receipt Date: 20221121
  Transmission Date: 20230113
  Serious: Yes (Hospitalization)
  Sender: FDA-Public Use
  Company Number: US-BRISTOL-MYERS SQUIBB COMPANY-2022-133070

PATIENT
  Age: 79 Year
  Sex: Female
  Weight: 46.72 kg

DRUGS (2)
  1. REVLIMID [Suspect]
     Active Substance: LENALIDOMIDE
     Indication: Plasma cell myeloma
     Dosage: DAILY 21 DAYS ON 7 OFF
     Route: 048
     Dates: start: 20221020
  2. REVLIMID [Suspect]
     Active Substance: LENALIDOMIDE
     Dosage: 2W (WEEK), 1W (WEEK) OFF
     Route: 048

REACTIONS (3)
  - Urinary tract infection [Not Recovered/Not Resolved]
  - Blood urine present [Unknown]
  - Off label use [Unknown]

NARRATIVE: CASE EVENT DATE: 20221104
